FAERS Safety Report 9223767 (Version 1)
Quarter: 2013Q2

REPORT INFORMATION
  Report Type: Spontaneous
  Country: DE (occurrence: DE)
  Receive Date: 20130410
  Receipt Date: 20130410
  Transmission Date: 20140414
  Serious: Yes (Hospitalization)
  Sender: FDA-Public Use
  Company Number: DE-B.I. PHARMACEUTICALS,INC./RIDGEFIELD-2012-DE-02618DE

PATIENT
  Age: 71 Year
  Sex: Male
  Weight: 89 kg

DRUGS (11)
  1. PRADAXA [Suspect]
     Indication: ATRIAL FIBRILLATION
     Dosage: 220 MG
  2. ASS [Suspect]
     Indication: CORONARY ARTERY DISEASE
  3. AMIODARON [Suspect]
     Dosage: 200 MG
  4. TOREM [Concomitant]
     Dosage: 20 MG
  5. RAMIPRIL [Concomitant]
     Dosage: 5 MG
  6. BACLOFEN [Concomitant]
     Dosage: 15 MG
  7. PANTOZOL [Concomitant]
     Dosage: 40 MG
  8. CARBAMAZEPIN [Concomitant]
     Dosage: 600 MG
  9. NOVODIGAL [Concomitant]
     Dosage: 0.1 MG
  10. COTRIM FORTE [Concomitant]
     Indication: ESCHERICHIA URINARY TRACT INFECTION
  11. MOVICOL [Concomitant]

REACTIONS (9)
  - Gastrointestinal haemorrhage [Recovered/Resolved]
  - Rectal haemorrhage [Recovered/Resolved]
  - Melaena [Recovered/Resolved]
  - Diverticulum intestinal haemorrhagic [Recovered/Resolved]
  - Diverticulum intestinal [Unknown]
  - Anaemia [Recovered/Resolved]
  - Faecaloma [Unknown]
  - Escherichia urinary tract infection [Unknown]
  - Off label use [Unknown]
